FAERS Safety Report 9582979 (Version 1)
Quarter: 2013Q4

REPORT INFORMATION
  Report Type: Spontaneous
  Country: US (occurrence: US)
  Receive Date: 20131002
  Receipt Date: 20131002
  Transmission Date: 20140711
  Serious: No
  Sender: FDA-Public Use
  Company Number: US-AMGEN-USASP2013044865

PATIENT
  Age: 54 Year
  Sex: Female
  Weight: 62.13 kg

DRUGS (7)
  1. ENBREL [Suspect]
     Indication: PRODUCT USED FOR UNKNOWN INDICATION
     Dosage: 50 MG, QWK
     Route: 058
     Dates: start: 201302, end: 201304
  2. NORTRIPTYLIN [Concomitant]
     Dosage: 25 MG, UNK
  3. ASPIRIN (E.C.) [Concomitant]
     Dosage: 81 MG, UNK
  4. MULTIVITAMINS, PLAIN [Concomitant]
     Dosage: UNK
  5. GLUCOSAMIN CHONDROITIN             /01430901/ [Concomitant]
     Dosage: UNK
  6. VITAMIN D3 [Concomitant]
     Dosage: 2000 UNIT, UNK
  7. ELMIRON [Concomitant]
     Dosage: 100 MG, UNK

REACTIONS (1)
  - Injection site rash [Unknown]
